FAERS Safety Report 15945785 (Version 1)
Quarter: 2019Q1

REPORT INFORMATION
  Report Type: Spontaneous
  Country: CA (occurrence: CA)
  Receive Date: 20190212
  Receipt Date: 20190212
  Transmission Date: 20190417
  Serious: Yes (Hospitalization)
  Sender: FDA-Public Use
  Company Number: CA-ICU MEDICAL, INC.-ICU2019CA00030

PATIENT

DRUGS (6)
  1. MORPHINE SULFATE INJECTION [Suspect]
     Active Substance: MORPHINE SULFATE
     Indication: PRODUCT USED FOR UNKNOWN INDICATION
     Route: 065
  2. SANDOSTATIN [Suspect]
     Active Substance: OCTREOTIDE ACETATE
     Dosage: 20 MILLIGRAM,1 EVERY 1 MONTH
     Route: 030
  3. SANDOSTATIN [Suspect]
     Active Substance: OCTREOTIDE ACETATE
     Dosage: UNK, TID
     Route: 058
  4. SANDOSTATIN [Suspect]
     Active Substance: OCTREOTIDE ACETATE
     Dosage: 30 MG, 1 EVERY 1 MONTH
     Route: 030
  5. CODEINE [Suspect]
     Active Substance: CODEINE
     Indication: PRODUCT USED FOR UNKNOWN INDICATION
     Route: 065
  6. SANDOSTATIN [Suspect]
     Active Substance: OCTREOTIDE ACETATE
     Indication: SHORT-BOWEL SYNDROME
     Dosage: 40 MILLIGRAM, 1 EVERY 1 MONTH
     Route: 030

REACTIONS (23)
  - Gastrointestinal bacterial infection [Recovering/Resolving]
  - Immunodeficiency [Recovering/Resolving]
  - Bacterial test positive [Recovering/Resolving]
  - Fall [Recovering/Resolving]
  - Fungal infection [Recovering/Resolving]
  - Dehydration [Recovering/Resolving]
  - Electrolyte imbalance [Recovering/Resolving]
  - Infection [Recovering/Resolving]
  - Malaise [Recovering/Resolving]
  - Pain in extremity [Recovering/Resolving]
  - Product use in unapproved indication [Recovering/Resolving]
  - Blood pressure increased [Recovering/Resolving]
  - Upper limb fracture [Recovering/Resolving]
  - Contusion [Recovering/Resolving]
  - Gastrointestinal disorder [Recovering/Resolving]
  - Gastrooesophageal reflux disease [Recovering/Resolving]
  - Kidney infection [Recovering/Resolving]
  - Respiratory disorder [Recovering/Resolving]
  - Catheter site infection [Recovering/Resolving]
  - Intestinal obstruction [Recovering/Resolving]
  - Cortisol decreased [Recovering/Resolving]
  - Pneumonia [Recovering/Resolving]
  - Vomiting [Recovering/Resolving]
